FAERS Safety Report 8983244 (Version 1)
Quarter: 2012Q4

REPORT INFORMATION
  Report Type: 
  Country: US (occurrence: US)
  Receive Date: 20121212
  Receipt Date: 20121212
  Transmission Date: 20130627
  Serious: Yes (Death)
  Sender: FDA-Public Use
  Company Number: US-ASTELLAS-1118297

PATIENT
  Age: 69 Year
  Sex: Male

DRUGS (2)
  1. TARCEVA [Suspect]
     Indication: NON-SMALL CELL LUNG CANCER
     Dosage: dose reduced
     Route: 048
     Dates: start: 20050919
  2. TARCEVA [Suspect]
     Indication: MALIGNANT RESPIRATORY TRACT NEOPLASM
     Route: 048
     Dates: start: 20051031, end: 20060113

REACTIONS (4)
  - Lung neoplasm malignant [Fatal]
  - Diarrhoea [Unknown]
  - Rash [Unknown]
  - Metastases to liver [Unknown]
